FAERS Safety Report 25129668 (Version 1)
Quarter: 2025Q1

REPORT INFORMATION
  Report Type: Spontaneous
  Country: ES (occurrence: ES)
  Receive Date: 20250327
  Receipt Date: 20250327
  Transmission Date: 20250409
  Serious: Yes (Other)
  Sender: PFIZER
  Company Number: ES-UCBSA-2025015449

PATIENT
  Age: 14 Year
  Sex: Female

DRUGS (13)
  1. LEVETIRACETAM [Suspect]
     Active Substance: LEVETIRACETAM
     Indication: Seizure
     Dates: start: 2006
  2. LEVETIRACETAM [Suspect]
     Active Substance: LEVETIRACETAM
     Dates: start: 2006
  3. VALPROIC ACID [Concomitant]
     Active Substance: VALPROIC ACID
     Indication: Seizure
  4. RUFINAMIDE [Concomitant]
     Active Substance: RUFINAMIDE
     Indication: Lennox-Gastaut syndrome
  5. LACOSAMIDE [Concomitant]
     Active Substance: LACOSAMIDE
     Indication: Seizure
  6. PHENOBARBITAL [Concomitant]
     Active Substance: PHENOBARBITAL
     Indication: Seizure
  7. CLOBAZAM [Concomitant]
     Active Substance: CLOBAZAM
  8. LAMOTRIGINE [Concomitant]
     Active Substance: LAMOTRIGINE
     Indication: Seizure
  9. PERAMPANEL [Concomitant]
     Active Substance: PERAMPANEL
  10. DIAZEPAM [Concomitant]
     Active Substance: DIAZEPAM
  11. LORAZEPAM [Concomitant]
     Active Substance: LORAZEPAM
  12. MIDAZOLAM [Concomitant]
     Active Substance: MIDAZOLAM
  13. CENOBAMATE [Concomitant]
     Active Substance: CENOBAMATE
     Indication: Seizure

REACTIONS (8)
  - Seizure [Unknown]
  - Generalised tonic-clonic seizure [Unknown]
  - Tonic convulsion [Unknown]
  - Vagal nerve stimulator implantation [Unknown]
  - Selective mutism [Unknown]
  - Cognitive disorder [Unknown]
  - Behaviour disorder [Unknown]
  - Drug ineffective [Unknown]

NARRATIVE: CASE EVENT DATE: 20160101
